FAERS Safety Report 23985524 (Version 1)
Quarter: 2024Q2

REPORT INFORMATION
  Report Type: Spontaneous
  Country: US (occurrence: US)
  Receive Date: 20240618
  Receipt Date: 20240618
  Transmission Date: 20240716
  Serious: Yes (Other)
  Sender: FDA-Public Use
  Company Number: US-RECORDATI RARE DISEASE INC.-2024002041

PATIENT

DRUGS (2)
  1. SILTUXIMAB [Suspect]
     Active Substance: SILTUXIMAB
     Indication: Castleman^s disease
     Dosage: UNK
  2. SILTUXIMAB [Suspect]
     Active Substance: SILTUXIMAB
     Dosage: UNKNOWN DOSE, Q4W (EVERY 4 WEEKS)

REACTIONS (1)
  - Thrombocytopenia [Unknown]
